FAERS Safety Report 4695870-6 (Version None)
Quarter: 2005Q2

REPORT INFORMATION
  Report Type: 
  Country: None (occurrence: None)
  Receive Date: 20050621
  Receipt Date: 20050502
  Transmission Date: 20051028
  Serious: Yes (Hospitalization)
  Sender: FDA-Public Use
  Company Number: US-SANOFI-SYNTHELABO-A03200501343

PATIENT
  Sex: Female
  Weight: 79.4 kg

DRUGS (18)
  1. PLAVIX [Suspect]
     Indication: STENT PLACEMENT
     Route: 048
     Dates: start: 20050321
  2. PLAVIX [Suspect]
     Indication: ANGIOPLASTY
     Route: 048
     Dates: start: 20050321
  3. ASPIRIN [Suspect]
     Indication: STENT PLACEMENT
     Route: 048
     Dates: start: 20050321
  4. ASPIRIN [Suspect]
     Indication: ANGIOPLASTY
     Route: 048
     Dates: start: 20050321
  5. VASOTEC [Concomitant]
     Indication: DRUG USE FOR UNKNOWN INDICATION
     Route: 048
  6. CARDURA [Concomitant]
     Indication: DRUG USE FOR UNKNOWN INDICATION
     Route: 048
  7. CARDIZEM CD [Concomitant]
     Indication: DRUG USE FOR UNKNOWN INDICATION
     Route: 048
  8. TOLBUTAMIDE [Concomitant]
     Indication: DRUG USE FOR UNKNOWN INDICATION
     Route: 048
  9. VOLTAREN [Concomitant]
     Indication: DRUG USE FOR UNKNOWN INDICATION
     Route: 048
  10. PREMARIN [Concomitant]
     Route: 048
  11. PROVERA [Concomitant]
     Route: 048
  12. PRAVACHOL [Concomitant]
     Route: 048
  13. MULTIVITAMIN [Concomitant]
     Dosage: UNK
     Route: 048
  14. SYNTHROID [Concomitant]
     Route: 048
  15. DARVOCET [Concomitant]
     Route: 048
  16. RYNATAN [Concomitant]
     Dosage: 25/9 MG TWICE A DAY
     Route: 048
  17. PROTONIX [Concomitant]
     Route: 048
  18. CARISOPRODOL [Concomitant]
     Route: 048

REACTIONS (8)
  - ARTHRALGIA [None]
  - CONDITION AGGRAVATED [None]
  - FATIGUE [None]
  - MUSCLE SPASMS [None]
  - MYALGIA [None]
  - OEDEMA PERIPHERAL [None]
  - RENAL DISORDER [None]
  - SOMNOLENCE [None]
